FAERS Safety Report 6187465-2 (Version None)
Quarter: 2009Q2

REPORT INFORMATION
  Report Type: 
  Country: None (occurrence: None)
  Receive Date: 20090512
  Receipt Date: 20090501
  Transmission Date: 20091009
  Serious: Yes (Other)
  Sender: FDA-Public Use
  Company Number: HQWYE070606AUG04

PATIENT
  Sex: Female

DRUGS (5)
  1. CONJUGATED ESTROGENS [Suspect]
  2. PROGESTERONE [Suspect]
  3. ESTROGENS [Suspect]
  4. PROVERA [Suspect]
  5. ESTRADIOL [Suspect]

REACTIONS (1)
  - BREAST CANCER METASTATIC [None]
